FAERS Safety Report 5001037-4 (Version None)
Quarter: 2006Q2

REPORT INFORMATION
  Report Type: 
  Country: None (occurrence: None)
  Receive Date: 20060512
  Receipt Date: 20060407
  Transmission Date: 20061013
  Serious: Yes (Death, Hospitalization)
  Sender: FDA-Public Use
  Company Number: CH-GLAXOSMITHKLINE-B0420215A

PATIENT
  Age: 70 Year
  Sex: Female
  Weight: 50 kg

DRUGS (7)
  1. AUGMENTIN '125' [Suspect]
     Indication: SEPSIS
     Dosage: 2.2G THREE TIMES PER DAY
     Route: 042
     Dates: start: 20060405, end: 20060405
  2. DOBUTREX [Concomitant]
     Indication: SEPSIS
     Route: 042
     Dates: start: 20060405, end: 20060406
  3. MIDAZOLAM HCL [Concomitant]
     Indication: SEDATION
     Route: 042
     Dates: start: 20060405, end: 20060407
  4. VITAMIN B COMPLEX CAP [Concomitant]
     Indication: DRUG USE FOR UNKNOWN INDICATION
     Route: 065
  5. NEXIUM [Concomitant]
     Indication: DRUG USE FOR UNKNOWN INDICATION
     Dosage: 40MG PER DAY
     Route: 042
  6. LIQUAEMIN INJ [Concomitant]
     Indication: DRUG USE FOR UNKNOWN INDICATION
     Route: 042
  7. FENTANYL [Concomitant]
     Indication: SEDATION
     Route: 042

REACTIONS (4)
  - DISORIENTATION [None]
  - EPILEPSY [None]
  - LOSS OF CONSCIOUSNESS [None]
  - SOMNOLENCE [None]
